FAERS Safety Report 7138714-5 (Version None)
Quarter: 2010Q4

REPORT INFORMATION
  Report Type: 
  Country: None (occurrence: None)
  Receive Date: 20101202
  Receipt Date: 20101202
  Transmission Date: 20110411
  Serious: Yes (Other)
  Sender: FDA-Public Use
  Company Number: None

PATIENT
  Age: 10 Year
  Sex: Female
  Weight: 36.2878 kg

DRUGS (1)
  1. FAMOTIDINE [Suspect]
     Indication: GASTRITIS
     Dosage: 10MG QID PO
     Route: 048
     Dates: start: 20101129, end: 20101130

REACTIONS (2)
  - ASTHMA [None]
  - HALLUCINATIONS, MIXED [None]
